FAERS Safety Report 16676451 (Version 1)
Quarter: 2019Q3

REPORT INFORMATION
  Report Type: Spontaneous
  Country: US (occurrence: US)
  Receive Date: 20190807
  Receipt Date: 20190807
  Transmission Date: 20191004
  Serious: No
  Sender: FDA-Public Use
  Company Number: US-009507513-1907USA004628

PATIENT
  Sex: Female

DRUGS (4)
  1. SINEMET CR [Suspect]
     Active Substance: CARBIDOPA\LEVODOPA
     Dosage: 50/200 MG AT BEDTIME
  2. SINEMET [Suspect]
     Active Substance: CARBIDOPA\LEVODOPA
     Dosage: INCREASE IN LEVODOPA TO 1400MG/DAY
  3. SINEMET [Suspect]
     Active Substance: CARBIDOPA\LEVODOPA
     Indication: PARKINSON^S DISEASE
     Dosage: 0.5 TABLET 25/100 MG EVERY 3 H FROM 9AM TO 9PM
  4. SINEMET [Suspect]
     Active Substance: CARBIDOPA\LEVODOPA
     Dosage: DOUBLED DOSE OF LEVODOPA/ 200 MG

REACTIONS (5)
  - Hyperhidrosis [Unknown]
  - Therapeutic response shortened [Unknown]
  - Nausea [Unknown]
  - Therapeutic product effect incomplete [Unknown]
  - Therapeutic product effect decreased [Unknown]
